FAERS Safety Report 4489313-5 (Version None)
Quarter: 2004Q4

REPORT INFORMATION
  Report Type: 
  Country: None (occurrence: None)
  Receive Date: 20041026
  Receipt Date: 20041019
  Transmission Date: 20050328
  Serious: Yes (Other)
  Sender: FDA-Public Use
  Company Number: GBWYE009531AUG04

PATIENT
  Age: 45 Year
  Sex: Male

DRUGS (5)
  1. EFFEXOR XR [Suspect]
     Indication: MENTAL DISORDER
     Dosage: 150 MG 2X PER 1 DEC ORAL; SEE IMAGE
     Route: 048
     Dates: end: 20040101
  2. EFFEXOR XR [Suspect]
     Indication: MENTAL DISORDER
     Dosage: 150 MG 2X PER 1 DEC ORAL; SEE IMAGE
     Route: 048
     Dates: start: 20040101
  3. PROCYCLIDINE HYDROCHLORIDE 2MG TAB [Suspect]
     Dosage: 5 MG 3X PER 1 DAY
  4. LITHIUM CARBONATE [Concomitant]
  5. AMISULPRIDE  (AMISULPRIDE) [Concomitant]

REACTIONS (2)
  - DRUG LEVEL DECREASED [None]
  - TACHYCARDIA [None]
